FAERS Safety Report 20711656 (Version 1)
Quarter: 2022Q2

REPORT INFORMATION
  Report Type: Report from Study
  Country: DE (occurrence: DE)
  Receive Date: 20220414
  Receipt Date: 20220414
  Transmission Date: 20220721
  Serious: Yes (Hospitalization)
  Sender: FDA-Public Use
  Company Number: DE-BoehringerIngelheim-2022-BI-164101

PATIENT
  Age: 70 Year
  Sex: Female

DRUGS (19)
  1. AFATINIB [Suspect]
     Active Substance: AFATINIB
     Indication: EGFR gene mutation
     Dates: start: 20190324, end: 20190528
  2. AFATINIB [Suspect]
     Active Substance: AFATINIB
     Indication: Lung neoplasm malignant
     Dates: start: 20200517, end: 20200830
  3. AFATINIB [Suspect]
     Active Substance: AFATINIB
  4. CRIZOTINIB [Suspect]
     Active Substance: CRIZOTINIB
     Indication: EGFR gene mutation
     Dates: start: 20190324, end: 20190528
  5. CRIZOTINIB [Suspect]
     Active Substance: CRIZOTINIB
     Indication: Lung neoplasm malignant
     Dates: start: 20200517, end: 20200830
  6. CRIZOTINIB [Suspect]
     Active Substance: CRIZOTINIB
  7. DABRAFENIB [Suspect]
     Active Substance: DABRAFENIB
     Indication: EGFR gene mutation
     Dates: start: 20181206, end: 20190218
  8. DABRAFENIB [Suspect]
     Active Substance: DABRAFENIB
     Indication: Lung neoplasm malignant
     Dates: start: 20190222, end: 20190321
  9. DABRAFENIB [Suspect]
     Active Substance: DABRAFENIB
     Dates: start: 20190605, end: 20200319
  10. DABRAFENIB [Suspect]
     Active Substance: DABRAFENIB
     Dates: start: 20200902
  11. TRAMETINIB [Suspect]
     Active Substance: TRAMETINIB
     Indication: EGFR gene mutation
     Dates: start: 20181206, end: 20190218
  12. TRAMETINIB [Suspect]
     Active Substance: TRAMETINIB
     Indication: Lung neoplasm malignant
     Dates: start: 20190605, end: 20200319
  13. TRAMETINIB [Suspect]
     Active Substance: TRAMETINIB
     Dates: start: 20200902
  14. OSIMERTINIB [Suspect]
     Active Substance: OSIMERTINIB
     Indication: EGFR gene mutation
     Dates: start: 20190222, end: 20190321
  15. OSIMERTINIB [Suspect]
     Active Substance: OSIMERTINIB
     Indication: Lung neoplasm malignant
     Dates: start: 20190605, end: 20200319
  16. OSIMERTINIB [Suspect]
     Active Substance: OSIMERTINIB
     Dates: start: 20200320, end: 20200512
  17. OSIMERTINIB [Suspect]
     Active Substance: OSIMERTINIB
     Dates: start: 20200902
  18. BEVACIZUMAB [Suspect]
     Active Substance: BEVACIZUMAB
     Indication: EGFR gene mutation
     Dosage: 2X
     Dates: start: 20200320, end: 20200512
  19. BEVACIZUMAB [Suspect]
     Active Substance: BEVACIZUMAB
     Indication: Lung neoplasm malignant

REACTIONS (17)
  - Amylase increased [Unknown]
  - Lipase increased [Unknown]
  - Hyponatraemia [Unknown]
  - Anaemia [Unknown]
  - Ascites [Unknown]
  - Rash maculo-papular [Unknown]
  - Diarrhoea [Unknown]
  - Paronychia [Unknown]
  - Pyrexia [Unknown]
  - Fatigue [Unknown]
  - Oedema [Unknown]
  - Gamma-glutamyltransferase increased [Unknown]
  - Decreased appetite [Unknown]
  - Rash [Unknown]
  - Nausea [Unknown]
  - Blood alkaline phosphatase increased [Unknown]
  - Dry eye [Unknown]
